FAERS Safety Report 8811071 (Version 1)
Quarter: 2012Q4

REPORT INFORMATION
  Report Type: Spontaneous
  Country: US (occurrence: None)
  Receive Date: 20120925
  Receipt Date: 20120925
  Transmission Date: 20130627
  Serious: Yes (Life-Threatening, Disabling, Other)
  Sender: FDA-Public Use
  Company Number: None

PATIENT
  Age: 36 Year
  Sex: Male
  Weight: 61.69 kg

DRUGS (2)
  1. HALDOL [Suspect]
     Dosage: two pill
     Dates: start: 20090520, end: 20090613
  2. RISPERDAL [Suspect]
     Dosage: two pill

REACTIONS (3)
  - Tardive dyskinesia [None]
  - Torticollis [None]
  - Dystonia [None]
